FAERS Safety Report 23086485 (Version 1)
Quarter: 2023Q4

REPORT INFORMATION
  Report Type: Spontaneous
  Country: US (occurrence: US)
  Receive Date: 20231019
  Receipt Date: 20231019
  Transmission Date: 20240109
  Serious: Yes (Hospitalization, Other)
  Sender: FDA-Public Use
  Company Number: US-MLMSERVICE-20231005-4590207-1

PATIENT
  Age: 44 Year
  Sex: Male

DRUGS (1)
  1. LORAZEPAM [Suspect]
     Active Substance: LORAZEPAM
     Indication: Anxiety
     Dosage: 2 MILLIGRAM ( DOSE WAS UP TITRATED TO 24MG A DAY)
     Route: 065

REACTIONS (3)
  - Withdrawal catatonia [Recovered/Resolved]
  - Condition aggravated [Recovered/Resolved]
  - Withdrawal syndrome [Recovered/Resolved]
